FAERS Safety Report 9110496 (Version 2)
Quarter: 2013Q2

REPORT INFORMATION
  Report Type: Report from Study
  Country: US (occurrence: US)
  Receive Date: 20130223
  Receipt Date: 20130514
  Transmission Date: 20140414
  Serious: Yes (Hospitalization)
  Sender: FDA-Public Use
  Company Number: US-US-EMD SERONO, INC.-7194800

PATIENT
  Age: 45 Year
  Sex: Female
  Weight: 56 kg

DRUGS (3)
  1. REBIF [Suspect]
     Indication: MULTIPLE SCLEROSIS
     Route: 058
     Dates: start: 20120316, end: 201211
  2. LYRICA [Concomitant]
     Indication: PAIN
  3. GABAPENTIN [Concomitant]
     Indication: PAIN

REACTIONS (4)
  - Gallbladder disorder [Recovered/Resolved]
  - Crohn^s disease [Not Recovered/Not Resolved]
  - Multiple sclerosis relapse [Not Recovered/Not Resolved]
  - Muscular weakness [Unknown]
